FAERS Safety Report 17879833 (Version 1)
Quarter: 2020Q2

REPORT INFORMATION
  Report Type: Spontaneous
  Country: US (occurrence: US)
  Receive Date: 20200610
  Receipt Date: 20200610
  Transmission Date: 20200714
  Serious: No
  Sender: FDA-Public Use
  Company Number: US-HTU-2019US019939

PATIENT
  Sex: Female

DRUGS (1)
  1. VALCHLOR [Suspect]
     Active Substance: MECHLORETHAMINE
     Indication: LYMPHOMATOID PAPULOSIS
     Dosage: THIN FILM, QOD
     Route: 061

REACTIONS (5)
  - Hypoaesthesia oral [Unknown]
  - Miliaria [Unknown]
  - Lip discolouration [Unknown]
  - Lip pain [Unknown]
  - Off label use [Unknown]
